FAERS Safety Report 12405293 (Version 1)
Quarter: 2016Q2

REPORT INFORMATION
  Report Type: Other
  Country: TR (occurrence: TR)
  Receive Date: 20160525
  Receipt Date: 20160525
  Transmission Date: 20160815
  Serious: Yes (Other)
  Sender: FDA-Public Use
  Company Number: TR-AMPHASTAR PHARMACEUTICALS, INC.-1052827

PATIENT
  Age: 73 Year
  Sex: Male

DRUGS (1)
  1. ENOXAPARIN [Suspect]
     Active Substance: ENOXAPARIN
     Indication: ANGINA UNSTABLE
     Route: 058

REACTIONS (1)
  - Dermatitis bullous [Recovered/Resolved]
